FAERS Safety Report 5917136-6 (Version None)
Quarter: 2008Q4

REPORT INFORMATION
  Report Type: 
  Country: None (occurrence: None)
  Receive Date: 20081014
  Receipt Date: 20081007
  Transmission Date: 20090506
  Serious: Yes (Hospitalization)
  Sender: FDA-Public Use
  Company Number: US-AVENTIS-200816068US

PATIENT

DRUGS (4)
  1. LOVENOX [Suspect]
     Route: 058
  2. LOVENOX [Suspect]
     Dosage: DOSE: UNK
  3. LOVENOX [Suspect]
     Indication: FEMUR FRACTURE
     Route: 058
  4. LOVENOX [Suspect]
     Dosage: DOSE: UNK

REACTIONS (3)
  - HAEMOGLOBIN DECREASED [None]
  - HAEMOLYSIS [None]
  - PLATELET COUNT INCREASED [None]
